FAERS Safety Report 4987939-3 (Version None)
Quarter: 2006Q2

REPORT INFORMATION
  Report Type: 
  Country: None (occurrence: None)
  Receive Date: 20060424
  Receipt Date: 20060417
  Transmission Date: 20061013
  Serious: Yes (Death, Hospitalization, Other)
  Sender: FDA-Public Use
  Company Number: 2006-04-0957

PATIENT
  Age: 71 Year
  Sex: Male
  Weight: 82 kg

DRUGS (4)
  1. TEMODAL [Suspect]
     Indication: GLIOBLASTOMA MULTIFORME
     Dosage: 140MG QD ORAL
     Route: 048
     Dates: start: 20060215, end: 20060321
  2. NEXIUM [Concomitant]
  3. DEPAKINE ENTERIC COATED TABLETS [Concomitant]
  4. DEXAMETHASONE INJECTIONABLE SOLUTION [Concomitant]

REACTIONS (3)
  - BONE MARROW FAILURE [None]
  - CARDIAC FAILURE [None]
  - HAEMORRHAGE [None]
